FAERS Safety Report 12921750 (Version 1)
Quarter: 2016Q4

REPORT INFORMATION
  Report Type: Spontaneous
  Country: US (occurrence: US)
  Receive Date: 20161108
  Receipt Date: 20161108
  Transmission Date: 20170207
  Serious: No
  Sender: FDA-Public Use
  Company Number: US-APOTEX-2016AP012606

PATIENT
  Sex: Female

DRUGS (2)
  1. MEDROL [Suspect]
     Active Substance: METHYLPREDNISOLONE
     Indication: SINUSITIS
     Dosage: 1 PACK AS DIRECTED , GIVEN MULTIPLE TIMES
     Route: 048
     Dates: start: 2011, end: 2015
  2. GABAPENTIN. [Suspect]
     Active Substance: GABAPENTIN
     Indication: NEUROPATHY PERIPHERAL
     Dosage: 100 MG, TID (3 CAPS)
     Route: 048
     Dates: start: 2011, end: 2015

REACTIONS (3)
  - Lethargy [Recovered/Resolved]
  - Drug hypersensitivity [Unknown]
  - Flushing [Recovered/Resolved]
